FAERS Safety Report 9662310 (Version 2)
Quarter: 2013Q4

REPORT INFORMATION
  Report Type: Spontaneous
  Country: US (occurrence: US)
  Receive Date: 20131031
  Receipt Date: 20131031
  Transmission Date: 20140711
  Serious: No
  Sender: FDA-Public Use
  Company Number: US-PURDUE-USA-2010-0048452

PATIENT
  Age: 30 Year
  Sex: Male

DRUGS (5)
  1. OXYCONTIN (NDA 22-272) [Suspect]
     Indication: INTERVERTEBRAL DISC DEGENERATION
     Dosage: 160 MG, BID
  2. OXYCONTIN (NDA 22-272) [Suspect]
     Indication: SCOLIOSIS
  3. ROXICODONE [Concomitant]
     Dosage: 30 MG, BID
  4. OXYCODONE [Concomitant]
     Dosage: 1 ML, UNK
  5. NORCO [Concomitant]
     Dosage: UNK

REACTIONS (2)
  - Intentional drug misuse [Unknown]
  - Inadequate analgesia [Unknown]
